FAERS Safety Report 5455437-9 (Version None)
Quarter: 2007Q3

REPORT INFORMATION
  Report Type: 
  Country: None (occurrence: None)
  Receive Date: 20070914
  Receipt Date: 20070831
  Transmission Date: 20080115
  Serious: Yes (Other)
  Sender: FDA-Public Use
  Company Number: 2007RR-09750

PATIENT
  Age: 50 Year
  Sex: Female

DRUGS (8)
  1. SIMVASTATIN [Suspect]
     Indication: ANGINA PECTORIS
     Dosage: 20 MG, ORAL
     Route: 048
     Dates: start: 20070723, end: 20070725
  2. ASPIRIN [Concomitant]
  3. CO-DYDRAMOL TABLETS [Concomitant]
  4. IRBESARTAN [Concomitant]
  5. MELOXICAM RANBAXY 7.5MG TABLET (MELOXICAM) [Concomitant]
  6. PANTOPRAZOLE SODIUM [Concomitant]
  7. TILDIEM RETARD (DILTIAZEM HYDROCHLORIDE) [Concomitant]
  8. TRAMADOL HYDROCHLORIDE CAPSULES 50MG [Concomitant]

REACTIONS (3)
  - ANGIOEDEMA [None]
  - DYSPNOEA [None]
  - THROAT TIGHTNESS [None]
